FAERS Safety Report 8967904 (Version 1)
Quarter: 2012Q4

REPORT INFORMATION
  Report Type: 
  Country: US (occurrence: US)
  Receive Date: 20121218
  Receipt Date: 20121218
  Transmission Date: 20130627
  Serious: No
  Sender: FDA-Public Use
  Company Number: US-GLAXOSMITHKLINE-A0969328A

PATIENT
  Age: 43 Year
  Sex: Female

DRUGS (2)
  1. COREG CR [Suspect]
     Indication: CONGESTIVE CARDIOMYOPATHY
     Dosage: 40MG Per day
     Route: 048
     Dates: start: 201006
  2. NO CONCURRENT MEDICATION [Concomitant]

REACTIONS (7)
  - Tachycardia [Recovered/Resolved]
  - Arrhythmia [Unknown]
  - Blood pressure increased [Unknown]
  - Fatigue [Unknown]
  - Drug ineffective [Unknown]
  - Product quality issue [Unknown]
  - Expired drug administered [Unknown]
